FAERS Safety Report 8391710-2 (Version None)
Quarter: 2012Q1

REPORT INFORMATION
  Report Type: 
  Country: None (occurrence: None)
  Receive Date: 20120323
  Receipt Date: 20110308
  Transmission Date: 20120608
  Serious: Yes (Life-Threatening)
  Sender: FDA-Public Use
  Company Number: 163-21880-11031121

PATIENT
  Age: 79 Year
  Sex: Male

DRUGS (4)
  1. NYSTATIN [Concomitant]
  2. OCUVITE (OCUVITE) [Concomitant]
  3. REVLIMID [Suspect]
     Indication: MULTIPLE MYELOMA
     Dosage: 10 MG, DAILY FOR 28 DAYS, PO
     Route: 048
     Dates: start: 20101111
  4. FERROUS SULFATE TAB [Concomitant]

REACTIONS (1)
  - HAEMOGLOBIN DECREASED [None]
